FAERS Safety Report 11155461 (Version 2)
Quarter: 2015Q2

REPORT INFORMATION
  Report Type: Report from Study
  Country: US (occurrence: US)
  Receive Date: 20150602
  Receipt Date: 20150609
  Transmission Date: 20150821
  Serious: Yes (Hospitalization, Other)
  Sender: FDA-Public Use
  Company Number: US-ABBVIE-15K-163-1398462-00

PATIENT
  Age: 51 Year
  Sex: Female
  Weight: 99.88 kg

DRUGS (2)
  1. HUMIRA [Suspect]
     Active Substance: ADALIMUMAB
     Indication: PUSTULAR PSORIASIS
  2. HUMIRA [Suspect]
     Active Substance: ADALIMUMAB
     Indication: PSORIATIC ARTHROPATHY
     Route: 065
     Dates: start: 20150108, end: 20150514

REACTIONS (15)
  - Feeling abnormal [Recovering/Resolving]
  - Feeling hot [Recovering/Resolving]
  - Dehydration [Recovering/Resolving]
  - Diarrhoea haemorrhagic [Recovered/Resolved]
  - Gastrointestinal inflammation [Recovering/Resolving]
  - Neuralgia [Recovering/Resolving]
  - Drug ineffective [Unknown]
  - Henoch-Schonlein purpura [Not Recovered/Not Resolved]
  - Hypotension [Recovered/Resolved]
  - Peripheral swelling [Recovering/Resolving]
  - Nausea [Recovering/Resolving]
  - Cholelithiasis [Recovering/Resolving]
  - Loss of consciousness [Recovering/Resolving]
  - Psoriasis [Unknown]
  - Vitreous floaters [Recovering/Resolving]

NARRATIVE: CASE EVENT DATE: 2015
